FAERS Safety Report 8264196-6 (Version None)
Quarter: 2012Q2

REPORT INFORMATION
  Report Type: 
  Country: None (occurrence: None)
  Receive Date: 20120403
  Receipt Date: 20120326
  Transmission Date: 20120825
  Serious: Yes (Other)
  Sender: FDA-Public Use
  Company Number: A0971386A

PATIENT
  Age: 14 Year
  Sex: Male

DRUGS (5)
  1. TOPOTECAN HYDROCHLORIDE [Suspect]
     Indication: SARCOMA
     Dosage: 3 MG/M2 / PER DAY / INTRAVENOUS
     Route: 042
  2. CYCLOPHOSPHAMIDE [Suspect]
     Indication: SARCOMA
     Dosage: 1G/M2 / PER DAY / INTRAVENOUS
     Route: 042
  3. MESNA [Concomitant]
  4. DEXTROSE 5% AND SODIUM CHLORIDE 0.45% IN PLASTIC CONTAINER [Concomitant]
  5. GRANULOCYTE COL.STIM.FACT [Concomitant]

REACTIONS (2)
  - VENOOCCLUSIVE DISEASE [None]
  - HYPERBILIRUBINAEMIA [None]
